FAERS Safety Report 6120620-6 (Version None)
Quarter: 2009Q1

REPORT INFORMATION
  Report Type: 
  Country: None (occurrence: None)
  Receive Date: 20090312
  Receipt Date: 20090312
  Transmission Date: 20090719
  Serious: Yes (Hospitalization)
  Sender: FDA-Public Use
  Company Number: None

PATIENT
  Age: 58 Year
  Sex: Male
  Weight: 77.5651 kg

DRUGS (14)
  1. ZIPRASIDONE HCL [Suspect]
     Indication: MAJOR DEPRESSION
     Dosage: 80MG BID
     Dates: start: 20090123, end: 20090219
  2. VESICARE [Concomitant]
  3. FLOMAX [Concomitant]
  4. PANTOPRAZOLE SODIUM [Concomitant]
  5. EVOXAC [Concomitant]
  6. WARFARIN SODIUM [Concomitant]
  7. PREDNISONE [Concomitant]
  8. FOLIC ACID [Concomitant]
  9. BACLOFEN [Concomitant]
  10. MIRAPEX [Concomitant]
  11. REMICADE [Concomitant]
  12. VITAMIN D [Concomitant]
  13. METHOTREXATE [Concomitant]
  14. LEUCOVORIN CALCIUM [Concomitant]

REACTIONS (3)
  - DEPRESSION [None]
  - DISEASE PROGRESSION [None]
  - SUICIDAL IDEATION [None]
